FAERS Safety Report 5838354-1 (Version None)
Quarter: 2008Q3

REPORT INFORMATION
  Report Type: 
  Country: None (occurrence: None)
  Receive Date: 20080808
  Receipt Date: 20080731
  Transmission Date: 20090109
  Serious: Yes (Congenital Anomaly, Other)
  Sender: FDA-Public Use
  Company Number: GB-AMGEN-US299443

PATIENT

DRUGS (1)
  1. ENBREL [Suspect]
     Indication: RHEUMATOID ARTHRITIS
     Dosage: 50 MG FREQUENCY UNKNOWN
     Route: 064
     Dates: start: 20070101, end: 20080601

REACTIONS (2)
  - HEART DISEASE CONGENITAL [None]
  - PATERNAL DRUGS AFFECTING FOETUS [None]
